FAERS Safety Report 8233219-2 (Version None)
Quarter: 2012Q1

REPORT INFORMATION
  Report Type: 
  Country: None (occurrence: None)
  Receive Date: 20120326
  Receipt Date: 20120315
  Transmission Date: 20120608
  Serious: No
  Sender: FDA-Public Use
  Company Number: US-PFIZER INC-2012073336

PATIENT
  Sex: Female

DRUGS (3)
  1. COUMADIN [Concomitant]
     Indication: ATRIAL FIBRILLATION
  2. NORVASC [Suspect]
     Indication: BLOOD PRESSURE ABNORMAL
     Dosage: 10 MG, DAILY
     Route: 048
  3. ENALAPRIL [Concomitant]
     Indication: CARDIAC DISORDER

REACTIONS (1)
  - CARPAL TUNNEL SYNDROME [None]
